FAERS Safety Report 18858396 (Version 1)
Quarter: 2021Q1

REPORT INFORMATION
  Report Type: Spontaneous
  Country: CN (occurrence: CN)
  Receive Date: 20210208
  Receipt Date: 20210208
  Transmission Date: 20210420
  Serious: Yes (Hospitalization, Other)
  Sender: FDA-Public Use
  Company Number: CN-ABBVIE-21P-035-3762481-00

PATIENT
  Age: 57 Year
  Sex: Male
  Weight: 65 kg

DRUGS (3)
  1. FENOFIBRATE. [Suspect]
     Active Substance: FENOFIBRATE
     Indication: CORONARY ARTERY DISEASE
     Dosage: DAILY DOSE: 200 MILLIGRAM
     Route: 048
     Dates: start: 20201228, end: 20210114
  2. INSULIN ASPART [Suspect]
     Active Substance: INSULIN ASPART
     Indication: DIABETES MELLITUS
     Dosage: DAILY DOSE: 24 UNIT
     Route: 041
     Dates: start: 20201230, end: 20210109
  3. PAPAVERINE HYDROCHLORIDE. [Suspect]
     Active Substance: PAPAVERINE HYDROCHLORIDE
     Indication: CORONARY ARTERY DISEASE
     Dosage: DAILY DOSE: 90 MILLIGRAM
     Route: 041
     Dates: start: 20201228, end: 20210106

REACTIONS (2)
  - Pruritus [Recovering/Resolving]
  - Chest discomfort [Recovering/Resolving]

NARRATIVE: CASE EVENT DATE: 20201230
